FAERS Safety Report 7650939-9 (Version None)
Quarter: 2011Q3

REPORT INFORMATION
  Report Type: 
  Country: None (occurrence: None)
  Receive Date: 20110802
  Receipt Date: 20110727
  Transmission Date: 20111222
  Serious: Yes (Other)
  Sender: FDA-Public Use
  Company Number: US-PFIZER INC-2011088471

PATIENT
  Sex: Female

DRUGS (2)
  1. SUTENT [Suspect]
     Dosage: 50 MG DAILY X 28 DAYS Q 42 DAYS
     Dates: start: 20110401, end: 20110422
  2. SUTENT [Suspect]
     Dosage: 37.5 MG, 1X/DAY
     Dates: start: 20110521

REACTIONS (2)
  - HYPERTENSION [None]
  - WEIGHT DECREASED [None]
